FAERS Safety Report 6072168-5 (Version None)
Quarter: 2009Q1

REPORT INFORMATION
  Report Type: 
  Country: None (occurrence: None)
  Receive Date: 20090210
  Receipt Date: 20090202
  Transmission Date: 20090719
  Serious: Yes (Hospitalization)
  Sender: FDA-Public Use
  Company Number: B0557033A

PATIENT
  Age: 34 Year
  Sex: Male

DRUGS (12)
  1. DEROXAT [Suspect]
     Indication: DRUG USE FOR UNKNOWN INDICATION
     Dosage: 1UNIT PER DAY
     Route: 048
     Dates: start: 20081213, end: 20081218
  2. KEPPRA [Suspect]
     Indication: DRUG USE FOR UNKNOWN INDICATION
     Dosage: 1000MG PER DAY
     Route: 048
     Dates: start: 20081213, end: 20081221
  3. TARGOCID [Suspect]
     Indication: DRUG USE FOR UNKNOWN INDICATION
     Dosage: 600MG PER DAY
     Route: 042
     Dates: start: 20081126, end: 20081218
  4. OGAST [Concomitant]
     Dosage: 30MG PER DAY
     Route: 048
  5. STILNOX [Concomitant]
     Dosage: 10MG PER DAY
     Route: 048
     Dates: start: 20081114
  6. RIFADIN [Concomitant]
     Indication: SUBDURAL EMPYEMA
     Dosage: 1200MCG PER DAY
     Route: 048
     Dates: start: 20081113
  7. LIORESAL [Concomitant]
     Route: 048
     Dates: start: 20081113
  8. DOLIPRANE [Concomitant]
     Route: 065
  9. DIFFU K [Concomitant]
     Route: 065
  10. MAG 2 [Concomitant]
     Route: 065
  11. SCOPODERM [Concomitant]
     Route: 065
  12. PHOSPHORE [Concomitant]
     Route: 065

REACTIONS (1)
  - NEUTROPENIA [None]
